FAERS Safety Report 19891260 (Version 1)
Quarter: 2021Q3

REPORT INFORMATION
  Report Type: Spontaneous
  Country: FI (occurrence: FI)
  Receive Date: 20210927
  Receipt Date: 20210927
  Transmission Date: 20211014
  Serious: Yes (Disabling)
  Sender: FDA-Public Use
  Company Number: FI-JNJFOC-20210946932

PATIENT
  Age: 42 Year
  Sex: Female

DRUGS (2)
  1. REMICADE [Suspect]
     Active Substance: INFLIXIMAB
     Indication: RHEUMATOID ARTHRITIS
     Dosage: 300,ML,CYCLICAL
     Route: 042
     Dates: start: 202101, end: 202108
  2. SPIKEVAX [Suspect]
     Active Substance: CX-024414
     Indication: PROPHYLAXIS
     Dosage: 1,DF,X1
     Route: 065
     Dates: start: 2021, end: 2021

REACTIONS (6)
  - Hypersensitivity [Recovering/Resolving]
  - Diarrhoea [Recovering/Resolving]
  - Malaise [Recovering/Resolving]
  - Hepatic enzyme increased [Recovering/Resolving]
  - Antinuclear antibody increased [Recovering/Resolving]
  - Fatigue [Recovering/Resolving]

NARRATIVE: CASE EVENT DATE: 202107
